FAERS Safety Report 13416439 (Version 1)
Quarter: 2017Q2

REPORT INFORMATION
  Report Type: Spontaneous
  Country: JP (occurrence: JP)
  Receive Date: 20170407
  Receipt Date: 20170407
  Transmission Date: 20170830
  Serious: Yes (Hospitalization, Other)
  Sender: FDA-Public Use
  Company Number: JP-GILEAD-2017-0265331

PATIENT
  Age: 80 Year
  Sex: Female

DRUGS (6)
  1. RECALBON                           /00454801/ [Concomitant]
     Active Substance: ALFACALCIDOL
  2. HARVONI [Suspect]
     Active Substance: LEDIPASVIR\SOFOSBUVIR
     Indication: HEPATITIS C
     Dosage: UNK
     Route: 048
     Dates: start: 20160323, end: 20160427
  3. GASTER [Concomitant]
     Active Substance: FAMOTIDINE
  4. MERISLON [Concomitant]
     Active Substance: BETAHISTINE MESILATE
  5. NORVASC [Concomitant]
     Active Substance: AMLODIPINE BESYLATE
  6. OLMETEC [Concomitant]
     Active Substance: OLMESARTAN MEDOXOMIL

REACTIONS (1)
  - Cerebral infarction [Recovered/Resolved]

NARRATIVE: CASE EVENT DATE: 20160404
